FAERS Safety Report 4992886-7 (Version None)
Quarter: 2006Q2

REPORT INFORMATION
  Report Type: 
  Country: None (occurrence: None)
  Receive Date: 20060504
  Receipt Date: 20051019
  Transmission Date: 20061013
  Serious: Yes (Hospitalization)
  Sender: FDA-Public Use
  Company Number: US-MERCK-0510USA08312

PATIENT
  Age: 79 Year
  Sex: Female
  Weight: 61 kg

DRUGS (10)
  1. VIOXX [Suspect]
     Indication: ARTHRALGIA
     Route: 048
     Dates: start: 19991104, end: 20010719
  2. PREMARIN [Concomitant]
     Indication: HOT FLUSH
     Route: 065
  3. MECLIZINE [Concomitant]
     Route: 065
  4. AMBIEN [Concomitant]
     Route: 065
  5. DETROL [Concomitant]
     Route: 065
  6. ATENOLOL [Concomitant]
     Route: 065
  7. LANOXIN [Concomitant]
     Route: 065
  8. DILTIA XT [Concomitant]
     Route: 065
  9. CARDURA [Concomitant]
     Route: 065
  10. QUINIDINE [Concomitant]
     Route: 065

REACTIONS (10)
  - ABDOMINAL PAIN [None]
  - AORTIC VALVE CALCIFICATION [None]
  - CEREBROVASCULAR ACCIDENT [None]
  - HEART RATE IRREGULAR [None]
  - HYPERTENSION [None]
  - INTESTINAL MASS [None]
  - KIDNEY ENLARGEMENT [None]
  - RENAL MASS [None]
  - TRANSIENT ISCHAEMIC ATTACK [None]
  - VENTRICULAR HYPERTROPHY [None]
